FAERS Safety Report 6448479-8 (Version None)
Quarter: 2009Q4

REPORT INFORMATION
  Report Type: 
  Country: None (occurrence: None)
  Receive Date: 20091120
  Receipt Date: 20091116
  Transmission Date: 20100525
  Serious: Yes (Death)
  Sender: FDA-Public Use
  Company Number: KR-ASTRAZENECA-2009SE26814

PATIENT
  Age: 63 Year
  Sex: Male

DRUGS (2)
  1. IRESSA [Suspect]
     Indication: NON-SMALL CELL LUNG CANCER
     Dates: start: 20061011
  2. IRESSA [Suspect]
     Indication: ADENOCARCINOMA
     Dates: start: 20061011

REACTIONS (1)
  - ACUTE RESPIRATORY FAILURE [None]
